FAERS Safety Report 8780069 (Version 2)
Quarter: 2012Q4

REPORT INFORMATION
  Report Type: 
  Country: US (occurrence: US)
  Receive Date: 20120912
  Receipt Date: 20121204
  Transmission Date: 20130627
  Serious: No
  Sender: FDA-Public Use
  Company Number: US-VERTEX PHARMACEUTICAL INC.-AE-2012-004982

PATIENT
  Age: 43 Year
  Sex: Female

DRUGS (4)
  1. VX-950 (TELAPREVIR) [Suspect]
     Indication: HEPATITIS C
     Dosage: UNK
     Route: 048
     Dates: start: 20120224, end: 20120518
  2. PEGASYS [Suspect]
     Indication: HEPATITIS C
     Dosage: 120 ?g, UNK
     Route: 058
     Dates: start: 20120224, end: 20120901
  3. PEGASYS [Suspect]
     Dosage: 80.5 ?g, UNK
     Route: 058
     Dates: start: 20120419
  4. RIBAVIRIN [Suspect]
     Indication: HEPATITIS C
     Dosage: 1000 mg, UNK
     Route: 048
     Dates: start: 20120224, end: 20120901

REACTIONS (5)
  - Alopecia [Not Recovered/Not Resolved]
  - Dry skin [Unknown]
  - Injection site erythema [Unknown]
  - Drug ineffective [Not Recovered/Not Resolved]
  - Anaemia [Not Recovered/Not Resolved]
